FAERS Safety Report 6346720-3 (Version None)
Quarter: 2009Q3

REPORT INFORMATION
  Report Type: 
  Country: None (occurrence: None)
  Receive Date: 20090904
  Receipt Date: 20090825
  Transmission Date: 20100115
  Serious: Yes (Other)
  Sender: FDA-Public Use
  Company Number: SPV1-2009-01596

PATIENT
  Age: 90 Year
  Sex: Female

DRUGS (3)
  1. FOSRENOL [Suspect]
     Indication: HYPERPHOSPHATAEMIA
     Dosage: ORAL
     Route: 048
     Dates: start: 20090714, end: 20090730
  2. BAYASPIRIN (ACETYSALICYLIC ACID) [Concomitant]
  3. WARFARIN SODIUM [Concomitant]

REACTIONS (6)
  - CONSTIPATION [None]
  - DRUG ADMINISTRATION ERROR [None]
  - FAECALOMA [None]
  - GASTROINTESTINAL INJURY [None]
  - MUCOSAL HAEMORRHAGE [None]
  - RECTAL HAEMORRHAGE [None]
